FAERS Safety Report 8461779-5 (Version None)
Quarter: 2012Q2

REPORT INFORMATION
  Report Type: 
  Country: None (occurrence: None)
  Receive Date: 20120625
  Receipt Date: 20120615
  Transmission Date: 20120825
  Serious: Yes (Other)
  Sender: FDA-Public Use
  Company Number: US-BAYER-2011-112928

PATIENT
  Age: 44 Year
  Sex: Female
  Weight: 53.968 kg

DRUGS (5)
  1. CHLORHEXIDINE GLUCONATE [Concomitant]
     Dosage: 0.12 %, UNK
     Route: 048
  2. YAZ [Suspect]
     Dosage: UNK
     Dates: start: 20091028, end: 20091112
  3. NAPROXEN [Concomitant]
     Dosage: 500 MG, UNK
  4. VALTREX [Concomitant]
     Dosage: UNK UNK, PRN
  5. HERBALS NOS W/MINERALS NOS/VITAMINS NOS [Concomitant]

REACTIONS (7)
  - INJURY [None]
  - EMOTIONAL DISTRESS [None]
  - GENERAL PHYSICAL HEALTH DETERIORATION [None]
  - ANXIETY [None]
  - DEEP VEIN THROMBOSIS [None]
  - PAIN [None]
  - PULMONARY EMBOLISM [None]
